FAERS Safety Report 5007629-0 (Version None)
Quarter: 2006Q2

REPORT INFORMATION
  Report Type: 
  Country: None (occurrence: None)
  Receive Date: 20060522
  Receipt Date: 20060427
  Transmission Date: 20061013
  Serious: Yes (Disabling)
  Sender: FDA-Public Use
  Company Number: SE-ROCHE-445857

PATIENT
  Age: 32 Year
  Sex: Male

DRUGS (11)
  1. CYMEVENE [Suspect]
     Dosage: DOSAGE REGIMEN REPORTED AS CYCLIC.
     Route: 042
     Dates: start: 20051206, end: 20051231
  2. INVESTIGATIONAL DRUG NOS [Suspect]
     Dosage: DOSAGE REGIMEN = 1 G CYCLIC DRUG REPORTED AS UNKNOWN DRUG (SPECIAL LICENCE DRUG)
     Route: 042
     Dates: start: 20051206, end: 20060102
  3. INVESTIGATIONAL DRUG NOS [Suspect]
     Dosage: DRUG REPORTED AS UNKNOWN DRUG (SPECIAL LICENCE DRUG)
     Route: 042
     Dates: start: 20051202, end: 20051202
  4. INVESTIGATIONAL DRUG NOS [Suspect]
     Dosage: DRUG REPORTED AS UNKNOWN DRUG (SPECIAL LICENCE DRUG)
     Route: 042
     Dates: start: 20051202, end: 20060110
  5. BETAPRED [Concomitant]
     Dosage: SOLUTION FOR INJECTION.
  6. FUCIDINE CAP [Concomitant]
     Dosage: POWDER AND SOLVENT FOR SOLUTION FOR INFUSION.
  7. ZINACEF [Concomitant]
     Dosage: POWDER FOR SOLUTION / SUSPENSION FOR INJECTION.
  8. RIFADIN [Concomitant]
     Dosage: POWDER AND SOLVENT FOR SOLUTION FOR INFUSION 600 MG.
  9. TIENAM [Concomitant]
     Dosage: POWDER FOR SOLUTION FOR INFUSION.
  10. DIFLUCAN [Concomitant]
     Dosage: SOLUTION FOR INFUSION.
  11. AMBISOME [Concomitant]
     Dosage: POWDER FOR SOLUTION FOR INFUSION 50 MG.

REACTIONS (3)
  - DEAFNESS NEUROSENSORY [None]
  - HEARING IMPAIRED [None]
  - TINNITUS [None]
